FAERS Safety Report 9924346 (Version 2)
Quarter: 2014Q1

REPORT INFORMATION
  Report Type: Spontaneous
  Country: SE (occurrence: SE)
  Receive Date: 20140226
  Receipt Date: 20140226
  Transmission Date: 20141002
  Serious: No
  Sender: FDA-Public Use
  Company Number: SE-009507513-1401SWE007302

PATIENT
  Sex: Female

DRUGS (4)
  1. ASMANEX TWISTHALER [Suspect]
     Indication: ASTHMA
     Dosage: UNK
     Route: 048
  2. FLUTIDE [Concomitant]
  3. COMBIVENT [Concomitant]
  4. BETAPRED (BETAMETHASONE SODIUM PHOSPHATE) [Concomitant]

REACTIONS (5)
  - Asthma [Unknown]
  - Drug dose omission [Unknown]
  - Product quality issue [Unknown]
  - Incorrect route of drug administration [Unknown]
  - Drug ineffective [Not Recovered/Not Resolved]
